FAERS Safety Report 24907198 (Version 2)
Quarter: 2025Q3

REPORT INFORMATION
  Report Type: Spontaneous
  Country: JP (occurrence: JP)
  Receive Date: 20250130
  Receipt Date: 20250722
  Transmission Date: 20251020
  Serious: Yes (Hospitalization)
  Sender: Unknown Manufacturer
  Company Number: JP-MTPC-MTPC2025-0001849

PATIENT
  Age: 52 Year
  Sex: Female

DRUGS (11)
  1. EDARAVONE [Suspect]
     Active Substance: EDARAVONE
     Dosage: 5 MILLILITER, QD
     Route: 048
     Dates: start: 20241210, end: 20241219
  2. EDARAVONE [Suspect]
     Active Substance: EDARAVONE
     Dosage: 5 MILLILITER, QD
     Route: 048
     Dates: start: 20241210, end: 20241219
  3. EDARAVONE [Suspect]
     Active Substance: EDARAVONE
     Dosage: 5 MILLILITER, QD
     Route: 048
     Dates: start: 20250115, end: 20250117
  4. EDARAVONE [Suspect]
     Active Substance: EDARAVONE
     Dosage: 5 MILLILITER, QD
     Route: 048
     Dates: start: 20250115, end: 20250117
  5. EDARAVONE [Suspect]
     Active Substance: EDARAVONE
     Indication: Amyotrophic lateral sclerosis
     Route: 048
  6. EDARAVONE [Suspect]
     Active Substance: EDARAVONE
     Indication: Amyotrophic lateral sclerosis
     Route: 048
  7. ALESION [Concomitant]
     Active Substance: EPINASTINE HYDROCHLORIDE
     Route: 047
  8. ALLELOCK [Concomitant]
     Active Substance: OLOPATADINE HYDROCHLORIDE
     Route: 048
  9. AMINO ACIDS\DEXTROSE\ELECTROLYTES NOS\SOYBEAN OIL\VITAMINS [Concomitant]
     Active Substance: AMINO ACIDS\DEXTROSE\ELECTROLYTES NOS\SOYBEAN OIL\VITAMINS
     Dosage: 1500 GRAM, QD
     Route: 048
  10. RILUZOLE [Concomitant]
     Active Substance: RILUZOLE
     Route: 048
  11. URSODIOL [Concomitant]
     Active Substance: URSODIOL
     Route: 048

REACTIONS (7)
  - Diarrhoea [Recovered/Resolved]
  - Pyrexia [Recovered/Resolved]
  - Faeces soft [Recovered/Resolved]
  - Diarrhoea [Recovered/Resolved]
  - Pyrexia [Recovered/Resolved]
  - Faeces soft [Recovered/Resolved]
  - Off label use [Unknown]

NARRATIVE: CASE EVENT DATE: 20241221
